FAERS Safety Report 4699182-6 (Version None)
Quarter: 2005Q2

REPORT INFORMATION
  Report Type: 
  Country: None (occurrence: None)
  Receive Date: 20050622
  Receipt Date: 20050613
  Transmission Date: 20051028
  Serious: Yes (Death, Other)
  Sender: FDA-Public Use
  Company Number: JP-2005-009154

PATIENT
  Age: 65 Year
  Sex: Female
  Weight: 60.1 kg

DRUGS (9)
  1. FLUDARA [Suspect]
     Indication: CORD BLOOD TRANSPLANT THERAPY
     Dosage: 40 MG,1X/DAY, INTRAVENOUS
     Route: 042
     Dates: start: 20050506, end: 20050508
  2. NOVO HEPARIN (HEPARIN) [Concomitant]
  3. GAMIMUNE N 5% [Concomitant]
  4. BISPHONAL (DISODIUM INCADRONATE) [Concomitant]
  5. ELCITONIN (ELCATONIN) [Concomitant]
  6. LEVOTHYROXINE SODIUM [Concomitant]
  7. DIFLUCAN [Concomitant]
  8. TAKEPRON (LANSOPRAZOLE) [Concomitant]
  9. AMLODIPINE BESYLATE [Concomitant]

REACTIONS (8)
  - BLOOD PRESSURE DECREASED [None]
  - GENERALISED OEDEMA [None]
  - HEPATIC FAILURE [None]
  - LIVER DISORDER [None]
  - MULTI-ORGAN FAILURE [None]
  - RENAL DISORDER [None]
  - THERAPEUTIC RESPONSE DECREASED [None]
  - URINE OUTPUT DECREASED [None]
